FAERS Safety Report 5366246-3 (Version None)
Quarter: 2007Q2

REPORT INFORMATION
  Report Type: 
  Country: None (occurrence: None)
  Receive Date: 20070620
  Receipt Date: 20070620
  Transmission Date: 20071010
  Serious: Yes (Hospitalization)
  Sender: FDA-Public Use
  Company Number: None

PATIENT
  Sex: Male
  Weight: 79.9 kg

DRUGS (3)
  1. TEMOZOLOMIDE [Suspect]
     Dosage: 2100 MG
  2. THALOMID [Suspect]
     Dosage: 700 MG
  3. ACCUTANE [Suspect]
     Dosage: 1120 MG

REACTIONS (4)
  - CHEST PAIN [None]
  - CONSTIPATION [None]
  - LUNG CONSOLIDATION [None]
  - PULMONARY THROMBOSIS [None]
